FAERS Safety Report 5284715-1 (Version None)
Quarter: 2007Q2

REPORT INFORMATION
  Report Type: 
  Country: None (occurrence: None)
  Receive Date: 20070403
  Receipt Date: 20070322
  Transmission Date: 20071010
  Serious: Yes (Other)
  Sender: FDA-Public Use
  Company Number: CA-ELI_LILLY_AND_COMPANY-CA200703005982

PATIENT
  Sex: Male

DRUGS (4)
  1. FORTEO [Suspect]
     Indication: OSTEOPOROSIS
     Dosage: 20 UG, DAILY (1/D)
     Route: 058
     Dates: start: 20060222
  2. FLOVENT [Concomitant]
     Route: 055
  3. RHINOCORT [Concomitant]
     Route: 045
  4. VITAMIN CAP [Concomitant]

REACTIONS (1)
  - PROSTATE CANCER [None]
